FAERS Safety Report 5442130-1 (Version None)
Quarter: 2007Q3

REPORT INFORMATION
  Report Type: 
  Country: None (occurrence: None)
  Receive Date: 20070904
  Receipt Date: 20070824
  Transmission Date: 20080115
  Serious: Yes (Hospitalization)
  Sender: FDA-Public Use
  Company Number: US-JNJFOC-20070805232

PATIENT
  Age: 42 Year
  Sex: Female
  Weight: 93.44 kg

DRUGS (7)
  1. TOPAMAX [Suspect]
     Route: 048
  2. TOPAMAX [Suspect]
     Indication: MIGRAINE PROPHYLAXIS
     Route: 048
  3. ADVAIR DISKUS 100/50 [Concomitant]
     Indication: ASTHMA
     Route: 055
  4. ASTELIN [Concomitant]
     Indication: SINUS DISORDER
     Route: 045
  5. PROTONIX [Concomitant]
     Indication: GASTROOESOPHAGEAL REFLUX DISEASE
     Route: 048
  6. BUTALBITAL [Concomitant]
     Indication: HEADACHE
     Route: 048
  7. PARAFON FORTE [Concomitant]
     Indication: MUSCLE RELAXANT THERAPY
     Route: 048

REACTIONS (6)
  - DIARRHOEA [None]
  - DIVERTICULITIS [None]
  - HEADACHE [None]
  - PARAESTHESIA [None]
  - PYREXIA [None]
  - WEIGHT DECREASED [None]
